FAERS Safety Report 5166790-8 (Version None)
Quarter: 2006Q4

REPORT INFORMATION
  Report Type: 
  Country: None (occurrence: None)
  Receive Date: 20061204
  Receipt Date: 20061204
  Transmission Date: 20070319
  Serious: Yes (Other)
  Sender: FDA-Public Use
  Company Number: None

PATIENT
  Age: 86 Year
  Sex: Female

DRUGS (6)
  1. REVLIMID [Suspect]
     Indication: MYELODYSPLASTIC SYNDROME
     Dosage: 10MG DAILY PO
     Route: 048
     Dates: start: 20061027, end: 20061119
  2. AZITHROMYCIN [Concomitant]
  3. LEVOTHROID [Concomitant]
  4. HYDROXYZINE [Concomitant]
  5. CYANOCOBALAMIN [Concomitant]
  6. QVAR 40 [Concomitant]

REACTIONS (1)
  - NEUTROPENIA [None]
